FAERS Safety Report 9360186 (Version 5)
Quarter: 2014Q4

REPORT INFORMATION
  Report Type: Spontaneous
  Country: US (occurrence: US)
  Receive Date: 20130621
  Receipt Date: 20141118
  Transmission Date: 20150529
  Serious: Yes (Hospitalization)
  Sender: FDA-Public Use
  Company Number: US-BAYER-2013-073391

PATIENT
  Age: 27 Year
  Sex: Female
  Weight: 117.91 kg

DRUGS (2)
  1. MIRENA [Suspect]
     Active Substance: LEVONORGESTREL
     Indication: CONTRACEPTION
     Dosage: 20 MCG/24HR, CONT
     Route: 015
     Dates: start: 20080327, end: 20130308
  2. DYAZIDE [Concomitant]
     Active Substance: HYDROCHLOROTHIAZIDE\TRIAMTERENE
     Dosage: 37.5/25MG

REACTIONS (7)
  - Medical device discomfort [Not Recovered/Not Resolved]
  - Pain [Not Recovered/Not Resolved]
  - Injury [Not Recovered/Not Resolved]
  - Device misuse [None]
  - Embedded device [Not Recovered/Not Resolved]
  - Device issue [Not Recovered/Not Resolved]
  - Medical device pain [None]

NARRATIVE: CASE EVENT DATE: 201104
